FAERS Safety Report 9159221 (Version 1)
Quarter: 2013Q1

REPORT INFORMATION
  Report Type: Spontaneous
  Country: FR (occurrence: None)
  Receive Date: 20130213
  Receipt Date: 20130213
  Transmission Date: 20140127
  Serious: Yes (Hospitalization)
  Sender: FDA-Public Use
  Company Number: DSM-2013-00169

PATIENT
  Age: 64 Year
  Sex: Male

DRUGS (12)
  1. COOLMETEC [Suspect]
     Route: 048
  2. COOLMETEC [Suspect]
     Route: 048
  3. COOLMETEC [Suspect]
     Route: 048
  4. COOLMETEC [Suspect]
     Route: 048
  5. COOLMETEC [Suspect]
     Route: 048
  6. NEXAVAR [Suspect]
     Dosage: 800 MG (400 MG, 2 IN 1 D), ORAL
     Route: 048
     Dates: start: 20110812, end: 20110920
  7. RILMENIDINE [Suspect]
     Dosage: 1 MG (1 MG, 1 IN 1 D), ORAL
     Route: 048
     Dates: end: 20110920
  8. LERCAN [Suspect]
     Route: 048
  9. AVLOCARDYLL.P. (PROPRANOLOL) (160 MILLIGRAM, PROLONGED-RELEASE CAPSULE) (PROPRANOLOL) [Concomitant]
     Route: 048
  10. GLICLAZIDE (GLICLAZIDE) (GLICLAZIDE) [Concomitant]
  11. METFORMIN (METFORMIN) (METFORMIN) [Concomitant]
  12. GLUCOR [Suspect]

REACTIONS (1)
  - Blood pressure increased [None]
